FAERS Safety Report 6737018-X (Version None)
Quarter: 2010Q2

REPORT INFORMATION
  Report Type: 
  Country: None (occurrence: None)
  Receive Date: 20100523
  Receipt Date: 20090806
  Transmission Date: 20101027
  Serious: No
  Sender: FDA-Public Use
  Company Number: US-ALLERGAN-0910810US

PATIENT
  Sex: Male

DRUGS (2)
  1. ZYMAR [Suspect]
     Indication: POSTOPERATIVE CARE
     Dosage: 1 GTT, QID
     Route: 047
     Dates: start: 20090731
  2. PRED FORTE [Concomitant]
     Indication: POSTOPERATIVE CARE
     Route: 047
     Dates: start: 20090731

REACTIONS (2)
  - DIZZINESS [None]
  - DYSGEUSIA [None]
